FAERS Safety Report 8500951-2 (Version None)
Quarter: 2012Q2

REPORT INFORMATION
  Report Type: 
  Country: None (occurrence: None)
  Receive Date: 20120405
  Receipt Date: 20100317
  Transmission Date: 20120825
  Serious: Yes (Other)
  Sender: FDA-Public Use
  Company Number: PHEH2009US15658

PATIENT
  Age: 57 Year
  Sex: Female

DRUGS (5)
  1. RECLAST [Suspect]
     Indication: OSTEOPOROSIS
     Dosage: 5, INTRAVENOUS
     Route: 042
     Dates: start: 20091104
  2. HYDROCODONE BITARTRATE [Concomitant]
  3. CLONAZEPAM [Concomitant]
  4. CALCIUM CARBONATE [Concomitant]
  5. VITAMIN D [Concomitant]

REACTIONS (8)
  - MUSCULOSKELETAL PAIN [None]
  - HEART RATE INCREASED [None]
  - CHEST PAIN [None]
  - OXYGEN SATURATION DECREASED [None]
  - HEADACHE [None]
  - SENSATION OF PRESSURE [None]
  - DYSPNOEA [None]
  - BONE PAIN [None]
